FAERS Safety Report 4688423-7 (Version None)
Quarter: 2005Q2

REPORT INFORMATION
  Report Type: 
  Country: None (occurrence: None)
  Receive Date: 20050609
  Receipt Date: 20050527
  Transmission Date: 20051028
  Serious: Yes (Death)
  Sender: FDA-Public Use
  Company Number: 2005082564

PATIENT
  Age: 62 Year
  Sex: Male

DRUGS (1)
  1. SULFASALAZINE [Suspect]
     Indication: ILL-DEFINED DISORDER
     Dosage: (500 MG), ORAL
     Route: 048
     Dates: start: 20050314, end: 20050408

REACTIONS (1)
  - TOXIC SKIN ERUPTION [None]
